FAERS Safety Report 18418510 (Version 1)
Quarter: 2020Q4

REPORT INFORMATION
  Report Type: Other
  Country: CA (occurrence: CA)
  Receive Date: 20201023
  Receipt Date: 20201023
  Transmission Date: 20210114
  Serious: Yes (Other)
  Sender: FDA-Public Use
  Company Number: CA-CELLTRION INC.-2020CA029146

PATIENT

DRUGS (10)
  1. BREO ELLIPTA [Concomitant]
     Active Substance: FLUTICASONE FUROATE\VILANTEROL TRIFENATATE
     Indication: ASTHMA
     Dosage: 1 EVERY 1 DAYS
  2. PREGABALIN. [Concomitant]
     Active Substance: PREGABALIN
     Dosage: 50.0 MILLIGRAM, 3 EVERY 1 DAYS
     Route: 048
  3. PREDNISONE. [Concomitant]
     Active Substance: PREDNISONE
     Dosage: 5 MILLIGRAM, 1 EVERY 1 DAYS
     Route: 048
  4. PREDNISONE. [Concomitant]
     Active Substance: PREDNISONE
     Dosage: 7.5 MILLIGRAM, 1 EVERY 1 DAYS
     Route: 048
  5. RITUXIMAB (UNKNOWN) [Suspect]
     Active Substance: RITUXIMAB
     Indication: GRANULOMATOSIS WITH POLYANGIITIS
     Dosage: 645.0 MILLIGRAM
     Route: 042
  6. ACETAMINOPHEN;CAFFEINE;CODEINE [Concomitant]
     Route: 065
  7. ADVIL [IBUPROFEN] [Concomitant]
     Active Substance: IBUPROFEN
  8. LEFLUNOMIDE. [Concomitant]
     Active Substance: LEFLUNOMIDE
     Dosage: 20.0 MILLIGRAM, 1 EVERY 1 DAYS
     Route: 048
  9. PANTOPRAZOLE [Concomitant]
     Active Substance: PANTOPRAZOLE
  10. SULFATRIM [Concomitant]
     Active Substance: SULFAMETHOXAZOLE\TRIMETHOPRIM
     Dosage: 1 EVERY 1 DAYS
     Route: 048

REACTIONS (7)
  - Nasal congestion [Recovered/Resolved]
  - Cough [Recovered/Resolved]
  - Obstruction [Recovered/Resolved]
  - Oedema mucosal [Recovered/Resolved]
  - Pulmonary cavitation [Recovered/Resolved]
  - Secretion discharge [Recovered/Resolved]
  - Arthralgia [Recovered/Resolved]
